FAERS Safety Report 5851246-7 (Version None)
Quarter: 2008Q3

REPORT INFORMATION
  Report Type: 
  Country: None (occurrence: None)
  Receive Date: 20080731
  Receipt Date: 20080627
  Transmission Date: 20090109
  Serious: No
  Sender: FDA-Public Use
  Company Number: US200806006631

PATIENT
  Age: 36 Year
  Sex: Male
  Weight: 160.1 kg

DRUGS (4)
  1. BYETTA [Suspect]
     Indication: TYPE 2 DIABETES MELLITUS
     Dosage: 5 UG, 2/D, SUBCUTANEOUS, 10 UG, 2/D, SUBCUTANEOUS
     Route: 058
     Dates: start: 20070101, end: 20070101
  2. BYETTA [Suspect]
     Indication: TYPE 2 DIABETES MELLITUS
     Dosage: 5 UG, 2/D, SUBCUTANEOUS, 10 UG, 2/D, SUBCUTANEOUS
     Route: 058
     Dates: start: 20070101
  3. EXENATIDE PEN, DISPOSABLE DEVICE (EXENATIDE PEN) PEN,DISPOSABLE [Concomitant]
  4. ASPIRIN [Concomitant]

REACTIONS (2)
  - SINUS CONGESTION [None]
  - SINUSITIS [None]
